FAERS Safety Report 5073243-4 (Version None)
Quarter: 2006Q3

REPORT INFORMATION
  Report Type: 
  Country: None (occurrence: None)
  Receive Date: 20060808
  Receipt Date: 20060728
  Transmission Date: 20061208
  Serious: Yes (Hospitalization)
  Sender: FDA-Public Use
  Company Number: VE-ABBOTT-06P-178-0339419-00

PATIENT
  Age: 12 Year

DRUGS (13)
  1. SEVORANE LIQUID FOR INHALATION [Suspect]
     Indication: ANAESTHESIA
     Route: 055
  2. FENTANYL [Concomitant]
     Indication: ANALGESIC EFFECT
     Route: 042
  3. LIDOCAINE [Concomitant]
     Indication: DRUG USE FOR UNKNOWN INDICATION
     Dosage: 1 %
     Route: 042
  4. PROPOFOL [Concomitant]
     Indication: ANAESTHESIA
     Route: 042
  5. ROCURONIUM BROMIDE [Concomitant]
     Indication: NEUROMUSCULAR BLOCKADE
     Route: 042
  6. PROFENID [Concomitant]
     Indication: ANALGESIC EFFECT
     Route: 042
  7. FENTANYL [Concomitant]
     Route: 042
  8. ROCURONIUM BROMIDE [Concomitant]
     Route: 042
  9. OXYGEN [Concomitant]
     Indication: ANAESTHESIA REVERSAL
     Route: 055
  10. ATROPINE [Concomitant]
     Indication: ANAESTHESIA REVERSAL
     Route: 042
  11. AMINOFILINE [Concomitant]
     Indication: DRUG USE FOR UNKNOWN INDICATION
     Route: 042
  12. NALOXONE HCL [Concomitant]
     Indication: REVERSAL OF OPIATE ACTIVITY
     Route: 042
  13. NEOSTIGMINE [Concomitant]
     Indication: ANAESTHESIA REVERSAL
     Route: 042

REACTIONS (8)
  - ABNORMAL BEHAVIOUR [None]
  - DELAYED RECOVERY FROM ANAESTHESIA [None]
  - DYSARTHRIA [None]
  - FATIGUE [None]
  - HYPERSENSITIVITY [None]
  - HYPOXIC ENCEPHALOPATHY [None]
  - REGRESSIVE BEHAVIOUR [None]
  - UNEVALUABLE EVENT [None]
